FAERS Safety Report 9312282 (Version 1)
Quarter: 2013Q2

REPORT INFORMATION
  Report Type: Spontaneous
  Country: US (occurrence: US)
  Receive Date: 20130528
  Receipt Date: 20130528
  Transmission Date: 20140414
  Serious: Yes (Other)
  Sender: FDA-Public Use
  Company Number: US-JNJFOC-20130509510

PATIENT
  Sex: 0

DRUGS (3)
  1. DOXORUBICIN [Suspect]
     Indication: NEUROBLASTOMA
     Dosage: ON DAYS 1, 2 AND 3
     Route: 042
  2. OXALIPLATIN [Suspect]
     Indication: NEUROBLASTOMA
     Dosage: 105-130 MG/M2 ON DAY 1
     Route: 065
  3. DEXRAZOXANE [Suspect]
     Indication: NEUROBLASTOMA
     Dosage: ON DAYS 1, 2 AND 3
     Route: 065

REACTIONS (3)
  - Haematotoxicity [Unknown]
  - Cystitis haemorrhagic [Unknown]
  - Off label use [Unknown]
